FAERS Safety Report 10385173 (Version 2)
Quarter: 2015Q3

REPORT INFORMATION
  Report Type: Spontaneous
  Country: US (occurrence: US)
  Receive Date: 20140814
  Receipt Date: 20150817
  Transmission Date: 20151125
  Serious: No
  Sender: FDA-Public Use
  Company Number: US-GILEAD-2014-0111581

PATIENT
  Age: 69 Year
  Sex: Female

DRUGS (2)
  1. LETAIRIS [Suspect]
     Active Substance: AMBRISENTAN
     Indication: PRODUCT USED FOR UNKNOWN INDICATION
     Route: 065
     Dates: start: 20140804
  2. ADEMPAS [Concomitant]
     Active Substance: RIOCIGUAT
     Dosage: 0.5 MG, TID
     Dates: start: 20140805

REACTIONS (4)
  - Lethargy [Unknown]
  - Feeling cold [Unknown]
  - Headache [Unknown]
  - Hypotension [Unknown]
